FAERS Safety Report 6357158-7 (Version None)
Quarter: 2009Q3

REPORT INFORMATION
  Report Type: 
  Country: None (occurrence: None)
  Receive Date: 20090915
  Receipt Date: 20090903
  Transmission Date: 20100115
  Serious: Yes (Other)
  Sender: FDA-Public Use
  Company Number: US-WATSON-2009-07340

PATIENT
  Sex: Female
  Weight: 26.7 kg

DRUGS (3)
  1. ANDRODERM [Suspect]
     Indication: BLOOD TESTOSTERONE DECREASED
     Dosage: 1 PATCH, DAILY
     Route: 062
     Dates: start: 20090803
  2. ANDRODERM [Suspect]
     Dosage: 1 PATCH, DAILY
     Route: 062
     Dates: start: 20080105, end: 20090802
  3. ANDROGEL [Suspect]
     Indication: BLOOD TESTOSTERONE DECREASED
     Dosage: 1 APPLICATION, DAILY
     Route: 061
     Dates: start: 20050101, end: 20081104

REACTIONS (6)
  - ACCIDENTAL EXPOSURE [None]
  - BODY HEIGHT INCREASED [None]
  - BONE DEVELOPMENT ABNORMAL [None]
  - HAIR GROWTH ABNORMAL [None]
  - HYPERTRICHOSIS [None]
  - PRECOCIOUS PUBERTY [None]
